FAERS Safety Report 14799846 (Version 1)
Quarter: 2018Q2

REPORT INFORMATION
  Report Type: Spontaneous
  Country: US (occurrence: US)
  Receive Date: 20180416
  Receipt Date: 20180416
  Transmission Date: 20180711
  Serious: No
  Sender: FDA-Public Use
  Company Number: None

PATIENT
  Age: 70 Year
  Sex: Male

DRUGS (1)
  1. APIXABAN [Suspect]
     Active Substance: APIXABAN
     Indication: ATRIAL FIBRILLATION
     Route: 048
     Dates: start: 20161023, end: 20171128

REACTIONS (5)
  - Pyrexia [None]
  - Shock [None]
  - Gastrointestinal haemorrhage [None]
  - Dyspnoea [None]
  - Hypophagia [None]

NARRATIVE: CASE EVENT DATE: 20170829
